FAERS Safety Report 5413319-2 (Version None)
Quarter: 2007Q3

REPORT INFORMATION
  Report Type: 
  Country: None (occurrence: None)
  Receive Date: 20070814
  Receipt Date: 20070803
  Transmission Date: 20080115
  Serious: Yes (Other)
  Sender: FDA-Public Use
  Company Number: AR-NOVOPROD-265516

PATIENT
  Age: 69 Year
  Sex: Female

DRUGS (1)
  1. LEVEMIR [Suspect]
     Indication: INSULIN-REQUIRING TYPE II DIABETES MELLITUS

REACTIONS (2)
  - MUSCLE RIGIDITY [None]
  - SYNCOPE [None]
